FAERS Safety Report 20365881 (Version 1)
Quarter: 2022Q1

REPORT INFORMATION
  Report Type: Other
  Country: US (occurrence: US)
  Receive Date: 20220123
  Receipt Date: 20220123
  Transmission Date: 20220423
  Serious: No
  Sender: FDA-Public Use
  Company Number: US-ACORDA-ACO_167758_2021

PATIENT
  Sex: Male

DRUGS (1)
  1. AMPYRA [Suspect]
     Active Substance: DALFAMPRIDINE
     Indication: Product used for unknown indication
     Dosage: UNK
     Route: 065
     Dates: start: 2015

REACTIONS (6)
  - Amnesia [Unknown]
  - Diplopia [Unknown]
  - Giant cell arteritis [Unknown]
  - Condition aggravated [Unknown]
  - Balance disorder [Unknown]
  - Headache [Unknown]
